FAERS Safety Report 8605248-8 (Version None)
Quarter: 2012Q3

REPORT INFORMATION
  Report Type: 
  Country: None (occurrence: None)
  Receive Date: 20120820
  Receipt Date: 20120806
  Transmission Date: 20120928
  Serious: No
  Sender: FDA-Public Use
  Company Number: US-BAYER-2012-080244

PATIENT
  Age: 55 Year
  Sex: Female

DRUGS (1)
  1. CLIMARA PRO [Suspect]

REACTIONS (2)
  - PRODUCT ADHESION ISSUE [None]
  - HOT FLUSH [None]
